FAERS Safety Report 23808177 (Version 1)
Quarter: 2024Q2

REPORT INFORMATION
  Report Type: Spontaneous
  Country: CN (occurrence: CN)
  Receive Date: 20240502
  Receipt Date: 20240502
  Transmission Date: 20240716
  Serious: Yes (Hospitalization)
  Sender: FDA-Public Use
  Company Number: CN-CHEPLA-2024005397

PATIENT
  Age: 49 Year
  Sex: Male
  Weight: 67 kg

DRUGS (2)
  1. CAPECITABINE [Suspect]
     Active Substance: CAPECITABINE
     Indication: Colon cancer
     Dosage: APPROVAL NO. GYZZ H20073024 /BID, D2-15/3W?DAILY DOSE: 3 GRAM
     Route: 048
     Dates: start: 20240319, end: 20240402
  2. OXALIPLATIN [Suspect]
     Active Substance: OXALIPLATIN
     Indication: Colon cancer
     Dosage: APPROVAL NO. GYZZ H20052531 / ROA: INTRAVENOUS DRIP/D1 ?DAILY DOSE: 150 MILLIGRAM
     Route: 042
     Dates: start: 20240318, end: 20240318

REACTIONS (5)
  - Platelet count decreased [Recovering/Resolving]
  - Bronchiectasis [Unknown]
  - Polycystic liver disease [Unknown]
  - Hypertension [Unknown]
  - Gallbladder polyp [Unknown]

NARRATIVE: CASE EVENT DATE: 20240415
